FAERS Safety Report 17534756 (Version 1)
Quarter: 2020Q1

REPORT INFORMATION
  Report Type: Spontaneous
  Country: GB (occurrence: GB)
  Receive Date: 20200312
  Receipt Date: 20200312
  Transmission Date: 20200409
  Serious: Yes (Other)
  Sender: FDA-Public Use
  Company Number: GB-PURDUE-GBR-2020-0075583

PATIENT
  Age: 34 Year
  Sex: Female
  Weight: 99.78 kg

DRUGS (4)
  1. BUTRANS [Suspect]
     Active Substance: BUPRENORPHINE
     Indication: PAIN
     Dosage: 5 MCG, Q1H (STRENGTH 5 MG)
     Route: 062
     Dates: start: 20191105, end: 20200216
  2. PARACETAMOL [Concomitant]
     Active Substance: ACETAMINOPHEN
  3. CYCLIZINE HYDROCHLORIDE [Concomitant]
     Active Substance: CYCLIZINE HYDROCHLORIDE
  4. OMEPRAZOLE. [Concomitant]
     Active Substance: OMEPRAZOLE

REACTIONS (4)
  - Tearfulness [Unknown]
  - Feeling of despair [Not Recovered/Not Resolved]
  - Restlessness [Not Recovered/Not Resolved]
  - Piloerection [Not Recovered/Not Resolved]

NARRATIVE: CASE EVENT DATE: 20200217
